FAERS Safety Report 16906180 (Version 1)
Quarter: 2019Q4

REPORT INFORMATION
  Report Type: Spontaneous
  Country: PT (occurrence: PT)
  Receive Date: 20191011
  Receipt Date: 20191011
  Transmission Date: 20200122
  Serious: Yes (Disabling)
  Sender: FDA-Public Use
  Company Number: PT-TEVA-2018-PT-870455

PATIENT
  Sex: Male

DRUGS (1)
  1. LEVOFLOXACIN TABLETS, 250 MG, 500 MG AND 750 MG [Suspect]
     Active Substance: LEVOFLOXACIN
     Indication: BRONCHITIS
     Dosage: PRESCRIPTION: 500 MG / DAY FOR 7 DAYS
     Route: 048
     Dates: start: 20170605

REACTIONS (2)
  - Myalgia [Unknown]
  - Tendon pain [Unknown]

NARRATIVE: CASE EVENT DATE: 20170607
